FAERS Safety Report 4900903-5 (Version None)
Quarter: 2006Q1

REPORT INFORMATION
  Report Type: 
  Country: None (occurrence: None)
  Receive Date: 20060113
  Receipt Date: 20051130
  Transmission Date: 20060701
  Serious: No
  Sender: FDA-Public Use
  Company Number: 2005SP004205

PATIENT
  Age: 55 Year
  Sex: Female
  Weight: 76.2043 kg

DRUGS (8)
  1. LUNESTA [Suspect]
     Indication: INSOMNIA
     Dosage: 2 MG; 1X; ORAL
     Route: 048
     Dates: start: 20051128, end: 20051128
  2. CYMBALTA [Concomitant]
  3. KLONOPIN [Concomitant]
  4. NORTRIPTYLINE HCL [Concomitant]
  5. AMBIEN [Concomitant]
  6. DIPHENHYDRAMINE [Concomitant]
  7. BACLOFEN [Concomitant]
  8. LEVOXYL [Concomitant]

REACTIONS (6)
  - CHEST PAIN [None]
  - DYSGEUSIA [None]
  - HEADACHE [None]
  - NAUSEA [None]
  - PARADOXICAL DRUG REACTION [None]
  - PRURITUS [None]
